FAERS Safety Report 24678562 (Version 1)
Quarter: 2024Q4

REPORT INFORMATION
  Report Type: Spontaneous
  Country: IN (occurrence: IN)
  Receive Date: 20241129
  Receipt Date: 20241129
  Transmission Date: 20250115
  Serious: Yes (Other)
  Sender: ALKEM
  Company Number: IN-ALKEM LABORATORIES LIMITED-IN-ALKEM-2024-01249

PATIENT
  Age: 23 Year
  Sex: Female

DRUGS (16)
  1. ISONIAZID [Suspect]
     Active Substance: ISONIAZID
     Indication: Meningitis tuberculous
     Dosage: UNK
     Route: 065
  2. ISONIAZID [Suspect]
     Active Substance: ISONIAZID
     Dosage: UNK (REINTRODUCED DOSE)
     Route: 065
  3. FLUCONAZOLE [Suspect]
     Active Substance: FLUCONAZOLE
     Indication: Encephalitis
     Dosage: 400 MG/DAY
     Route: 065
  4. FLUCONAZOLE [Suspect]
     Active Substance: FLUCONAZOLE
     Indication: Acanthamoeba infection
     Dosage: UNK (REINTRODUCED DOSE)
     Route: 065
  5. ETHAMBUTOL [Suspect]
     Active Substance: ETHAMBUTOL HYDROCHLORIDE
     Indication: Meningitis tuberculous
     Dosage: UNK
     Route: 065
  6. ETHAMBUTOL [Suspect]
     Active Substance: ETHAMBUTOL HYDROCHLORIDE
     Dosage: UNK (MODIFIED DOSE)
     Route: 065
  7. PYRAZINAMIDE [Suspect]
     Active Substance: PYRAZINAMIDE
     Indication: Meningitis tuberculous
     Dosage: UNK
     Route: 065
  8. RIFAMPIN [Suspect]
     Active Substance: RIFAMPIN
     Indication: Meningitis tuberculous
     Dosage: 600 MG/DAY
     Route: 065
  9. RIFAMPIN [Suspect]
     Active Substance: RIFAMPIN
     Dosage: UNK (REINTRODUCED DOSE)
     Route: 065
  10. DEXAMETHASONE [Concomitant]
     Active Substance: DEXAMETHASONE
     Indication: Encephalitis
     Dosage: 0.4 MILLIGRAM/KILOGRAM
     Route: 042
  11. DEXAMETHASONE [Concomitant]
     Active Substance: DEXAMETHASONE
     Indication: Acanthamoeba infection
     Dosage: UNK (TAPERED DOSE)
     Route: 042
  12. PREDNISOLONE [Concomitant]
     Active Substance: PREDNISOLONE
     Indication: Meningitis tuberculous
     Dosage: UNK
     Route: 065
  13. MILTEFOSINE [Concomitant]
     Active Substance: MILTEFOSINE
     Indication: Encephalitis
     Dosage: 50 MILLIGRAM, BID (TWICE DAILY)
     Route: 065
  14. MILTEFOSINE [Concomitant]
     Active Substance: MILTEFOSINE
     Indication: Acanthamoeba infection
  15. SULFAMETHOXAZOLE\TRIMETHOPRIM [Concomitant]
     Active Substance: SULFAMETHOXAZOLE\TRIMETHOPRIM
     Indication: Encephalitis
     Dosage: 160 MILLIGRAM, BID (TWICE DAILY)
     Route: 065
  16. SULFAMETHOXAZOLE\TRIMETHOPRIM [Concomitant]
     Active Substance: SULFAMETHOXAZOLE\TRIMETHOPRIM
     Indication: Acanthamoeba infection
     Dosage: 800 MILLIGRAM, BID (TWICE DAILY)
     Route: 065

REACTIONS (1)
  - Hepatotoxicity [Recovered/Resolved]
